FAERS Safety Report 4360209-2 (Version None)
Quarter: 2004Q2

REPORT INFORMATION
  Report Type: 
  Country: None (occurrence: None)
  Receive Date: 20040513
  Receipt Date: 20040504
  Transmission Date: 20050107
  Serious: Yes (Other)
  Sender: FDA-Public Use
  Company Number: US-JNJFOC-20040400980

PATIENT
  Age: 38 Year
  Sex: Male
  Weight: 95.6183 kg

DRUGS (8)
  1. REMICADE [Suspect]
     Indication: COLITIS ULCERATIVE
     Dosage: SEE IMAGE INTRAVENOUS
     Route: 042
     Dates: start: 20040331, end: 20040331
  2. REMICADE [Suspect]
     Indication: COLITIS ULCERATIVE
     Dosage: SEE IMAGE INTRAVENOUS
     Route: 042
     Dates: start: 20030709
  3. REMICADE [Suspect]
     Indication: COLITIS ULCERATIVE
     Dosage: SEE IMAGE INTRAVENOUS
     Route: 042
     Dates: start: 20030721
  4. REMICADE [Suspect]
     Indication: COLITIS ULCERATIVE
     Dosage: SEE IMAGE INTRAVENOUS
     Route: 042
     Dates: start: 20030819
  5. REMICADE [Suspect]
     Indication: COLITIS ULCERATIVE
     Dosage: SEE IMAGE INTRAVENOUS
     Route: 042
     Dates: start: 20030929
  6. REMICADE [Suspect]
     Indication: COLITIS ULCERATIVE
     Dosage: SEE IMAGE INTRAVENOUS
     Route: 042
     Dates: start: 20031124
  7. REMICADE [Suspect]
     Indication: COLITIS ULCERATIVE
     Dosage: SEE IMAGE INTRAVENOUS
     Route: 042
     Dates: start: 20040128
  8. IMURAN [Concomitant]

REACTIONS (2)
  - ANTINUCLEAR ANTIBODY POSITIVE [None]
  - LUPUS-LIKE SYNDROME [None]
